FAERS Safety Report 5758824-4 (Version None)
Quarter: 2008Q2

REPORT INFORMATION
  Report Type: 
  Country: None (occurrence: None)
  Receive Date: 20080602
  Receipt Date: 20080515
  Transmission Date: 20081010
  Serious: Yes (Hospitalization)
  Sender: FDA-Public Use
  Company Number: 2008S1008399

PATIENT
  Age: 89 Year
  Sex: Male

DRUGS (15)
  1. FLUOXETINE [Suspect]
     Indication: DEPRESSION
     Dosage: 20 MG; DAILY; ORAL
     Route: 048
     Dates: start: 20080131
  2. SOLIFENACIN (SOLIFENACIN) [Suspect]
     Indication: URINARY INCONTINENCE
     Dosage: 10 MG; DAILY; ORAL
     Route: 048
     Dates: start: 20080131
  3. AMLODIPINE (CON.) [Concomitant]
  4. CLOPIDOGREL (CON.) [Concomitant]
  5. FERROUS SULPHATE / 0023503/ (CON.) [Concomitant]
  6. FUROSEMIDE (CON.) [Concomitant]
  7. GLYCERYL TRINITRATE (CON.) [Concomitant]
  8. ISOSORBIDE MONONITRATE (CON.) [Concomitant]
  9. METFORMIN HYDROCHLORIDE (CON.) [Concomitant]
  10. OMEPRAZOLE (CON.) [Concomitant]
  11. PARACETAMOL (CON.) [Concomitant]
  12. RAMIPRIL (CON.) [Concomitant]
  13. RAMIPRIL (CON.) [Concomitant]
  14. SALBUTAMOL (CON.) [Concomitant]
  15. SPIRIVA (CON.) [Concomitant]

REACTIONS (5)
  - ASTHENIA [None]
  - CONFUSIONAL STATE [None]
  - FALL [None]
  - MUSCULAR WEAKNESS [None]
  - URINARY TRACT INFECTION [None]
